FAERS Safety Report 25997660 (Version 1)
Quarter: 2025Q4

REPORT INFORMATION
  Report Type: Spontaneous
  Country: US (occurrence: US)
  Receive Date: 20251104
  Receipt Date: 20251104
  Transmission Date: 20260118
  Serious: No
  Sender: BLUEPRINT MEDICINES
  Company Number: US-Blueprint Medicines Corporation-2025-AER-02371

PATIENT
  Age: 77 Year
  Sex: Female

DRUGS (1)
  1. AYVAKIT [Suspect]
     Active Substance: AVAPRITINIB
     Indication: Soft tissue sarcoma
     Route: 048
     Dates: start: 20200208

REACTIONS (4)
  - Lung disorder [Unknown]
  - Medical device removal [Unknown]
  - Medical procedure [Unknown]
  - Product dose omission issue [Unknown]
